FAERS Safety Report 8823208 (Version 2)
Quarter: 2012Q4

REPORT INFORMATION
  Report Type: 
  Country: FI (occurrence: FI)
  Receive Date: 20121003
  Receipt Date: 20121106
  Transmission Date: 20130627
  Serious: Yes (Hospitalization, Other)
  Sender: FDA-Public Use
  Company Number: FI-ELI_LILLY_AND_COMPANY-FI201209006548

PATIENT
  Sex: Female

DRUGS (7)
  1. FORSTEO [Suspect]
     Indication: OSTEOPOROSIS
     Dosage: 20 ug, qd
     Route: 058
     Dates: start: 20110810
  2. FURESIS [Concomitant]
     Dosage: UNK
  3. MAREVAN [Concomitant]
     Dosage: UNK
  4. GOLD [Concomitant]
     Indication: RHEUMATIC DISORDER
     Dosage: UNK
  5. CALCIUM D                          /00944201/ [Concomitant]
     Indication: MEDICAL DIET
     Dosage: UNK
  6. PANADOL [Concomitant]
     Indication: PAIN
     Dosage: UNK
  7. PANACOD [Concomitant]
     Indication: PAIN
     Dosage: UNK

REACTIONS (2)
  - Staphylococcal sepsis [Unknown]
  - Endocarditis [Unknown]
